FAERS Safety Report 6348176-3 (Version None)
Quarter: 2009Q3

REPORT INFORMATION
  Report Type: 
  Country: None (occurrence: None)
  Receive Date: 20090908
  Receipt Date: 20090827
  Transmission Date: 20100115
  Serious: Yes (Hospitalization)
  Sender: FDA-Public Use
  Company Number: GXKR2009DE09214

PATIENT
  Age: 80 Year
  Sex: Female
  Weight: 75 kg

DRUGS (1)
  1. OFLOXACIN [Suspect]
     Indication: URINARY TRACT INFECTION
     Dosage: 200 MG, BID, ORAL
     Route: 048
     Dates: start: 20060112, end: 20060115

REACTIONS (2)
  - CEREBROVASCULAR ACCIDENT [None]
  - VERTIGO [None]
